FAERS Safety Report 9502987 (Version 1)
Quarter: 2013Q3

REPORT INFORMATION
  Report Type: Spontaneous
  Country: DK (occurrence: IT)
  Receive Date: 20130906
  Receipt Date: 20130906
  Transmission Date: 20140515
  Serious: Yes (Other)
  Sender: FDA-Public Use
  Company Number: IT-FRI-1000048462

PATIENT
  Age: 41 Year
  Sex: Male

DRUGS (1)
  1. ESCITALOPRAM ORAL SOLUTION [Suspect]
     Dosage: 1 DF
     Route: 048
     Dates: start: 20130513, end: 20130516

REACTIONS (2)
  - Amnesia [Recovering/Resolving]
  - Parosmia [Recovering/Resolving]
